FAERS Safety Report 24853721 (Version 1)
Quarter: 2025Q1

REPORT INFORMATION
  Report Type: Spontaneous
  Country: PT (occurrence: PT)
  Receive Date: 20250117
  Receipt Date: 20250117
  Transmission Date: 20250409
  Serious: Yes (Other)
  Sender: AUROBINDO
  Company Number: PT-AUROBINDO-AUR-APL-2025-000107

PATIENT
  Age: 59 Year
  Sex: Female

DRUGS (2)
  1. LAMOTRIGINE [Interacting]
     Active Substance: LAMOTRIGINE
     Indication: Bipolar disorder
     Dosage: 50 MILLIGRAM, TWO TIMES A DAY
     Route: 065
  2. VALPROATE SODIUM [Interacting]
     Active Substance: VALPROATE SODIUM
     Indication: Bipolar disorder
     Dosage: 500 MILLIGRAM, TWO TIMES A DAY
     Route: 065

REACTIONS (3)
  - Rash pruritic [Recovering/Resolving]
  - Rash morbilliform [Recovering/Resolving]
  - Drug interaction [Recovering/Resolving]
